FAERS Safety Report 12972613 (Version 1)
Quarter: 2016Q4

REPORT INFORMATION
  Report Type: Spontaneous
  Country: US (occurrence: US)
  Receive Date: 20161124
  Receipt Date: 20161124
  Transmission Date: 20170207
  Serious: No
  Sender: FDA-Public Use
  Company Number: US-AMGEN-USASP2016163220

PATIENT
  Age: 63 Year
  Sex: Male

DRUGS (6)
  1. METHOTREXATE SODIUM. [Concomitant]
     Active Substance: METHOTREXATE SODIUM
  2. MOBIC [Concomitant]
     Active Substance: MELOXICAM
  3. NORCO [Concomitant]
     Active Substance: ACETAMINOPHEN\HYDROCODONE BITARTRATE
  4. ENBREL [Suspect]
     Active Substance: ETANERCEPT
     Indication: PSORIATIC ARTHROPATHY
     Dosage: 50 MG, QWK
     Route: 058
  5. FOLIC ACID. [Concomitant]
     Active Substance: FOLIC ACID
  6. PREDNISONE. [Concomitant]
     Active Substance: PREDNISONE

REACTIONS (2)
  - Urinary tract infection [Unknown]
  - Drug ineffective [Unknown]

NARRATIVE: CASE EVENT DATE: 201608
